FAERS Safety Report 14318271 (Version 1)
Quarter: 2017Q4

REPORT INFORMATION
  Report Type: Spontaneous
  Country: US (occurrence: US)
  Receive Date: 20171222
  Receipt Date: 20171222
  Transmission Date: 20180321
  Serious: Yes (Hospitalization)
  Sender: FDA-Public Use
  Company Number: US-PFIZER INC-2016365430

PATIENT
  Age: 83 Year
  Sex: Female

DRUGS (10)
  1. PREDNISONE. [Concomitant]
     Active Substance: PREDNISONE
     Dosage: 30 MG, UNK (FOR 3 DAYS)
     Route: 048
  2. XARELTO [Concomitant]
     Active Substance: RIVAROXABAN
     Dosage: 20 MG, 1X/DAY (TAKE 1 TABLET BY ORAL ROUTE EVERY DAY WITH THE EVENING MEAL)
     Route: 048
  3. LYRICA [Suspect]
     Active Substance: PREGABALIN
     Dosage: 150 MG, 2X/DAY
     Route: 048
  4. MULTAQ [Concomitant]
     Active Substance: DRONEDARONE
     Dosage: 400 MG, 2X/DAY (TAKE 1 TABLET BY ORAL ROUTE 2 TIMES EVERY DAY WITH MORNING AND EVENING MEALS)
     Route: 048
  5. PROAIR HFA [Concomitant]
     Active Substance: ALBUTEROL SULFATE
     Dosage: 2 DF, AS NEEDED (INHALE 2 PUFF BY INHALATION ROUTE EVERY 4-6 HOURS AS NEEDED)
  6. PREDNISONE. [Concomitant]
     Active Substance: PREDNISONE
     Dosage: 20 MG, UNK (FOR 3 DAYS)
     Route: 048
  7. PREDNISONE. [Concomitant]
     Active Substance: PREDNISONE
     Dosage: 10 MG, UNK (FOR 3 DAYS)
     Route: 048
  8. CARVEDILOL. [Concomitant]
     Active Substance: CARVEDILOL
     Dosage: 3.125 MG, 2X/DAY (TAKE 1 TABLET (3.125 MG) BY ORAL ROUTE 2 TIMES EVERY DAY WITH FOOD)
     Route: 048
  9. ATORVASTATIN [Concomitant]
     Active Substance: ATORVASTATIN
     Dosage: 20 MG, DAILY
     Route: 048
  10. PREDNISONE. [Concomitant]
     Active Substance: PREDNISONE
     Dosage: 40 MG, UNK (FOR 3 DAYS)
     Route: 048

REACTIONS (2)
  - Dyspnoea [Unknown]
  - Cardiac disorder [Unknown]
